FAERS Safety Report 14349207 (Version 1)
Quarter: 2018Q1

REPORT INFORMATION
  Report Type: Other
  Country: US (occurrence: US)
  Receive Date: 20180104
  Receipt Date: 20180104
  Transmission Date: 20180509
  Serious: Yes (Hospitalization, Other)
  Sender: FDA-Public Use
  Company Number: US-UNITED THERAPEUTICS-UNT-2017-018118

PATIENT
  Age: 1 Year
  Sex: Female
  Weight: 10.88 kg

DRUGS (1)
  1. REMODULIN [Suspect]
     Active Substance: TREPROSTINIL
     Indication: PULMONARY HYPERTENSION
     Dosage: 0.120 ?G/KG, CONTINUING
     Route: 041
     Dates: start: 20171120

REACTIONS (2)
  - Respiratory distress [Unknown]
  - Corona virus infection [Unknown]

NARRATIVE: CASE EVENT DATE: 201712
